FAERS Safety Report 7117601-2 (Version None)
Quarter: 2010Q4

REPORT INFORMATION
  Report Type: 
  Country: None (occurrence: None)
  Receive Date: 20101122
  Receipt Date: 20101013
  Transmission Date: 20110411
  Serious: Yes (Other)
  Sender: FDA-Public Use
  Company Number: JP-AMGEN-JPNSP2010000440

PATIENT

DRUGS (1)
  1. ENBREL [Suspect]
     Dosage: UNSPECIFIED

REACTIONS (1)
  - INFLAMMATORY PSEUDOTUMOUR [None]
